FAERS Safety Report 17731506 (Version 2)
Quarter: 2020Q2

REPORT INFORMATION
  Report Type: Spontaneous
  Country: BR (occurrence: BR)
  Receive Date: 20200430
  Receipt Date: 20200519
  Transmission Date: 20200714
  Serious: Yes (Other)
  Sender: FDA-Public Use
  Company Number: BR-DSJP-DSU-2012-00557

PATIENT

DRUGS (1)
  1. OLMETEC HCT 20/12.5 [Suspect]
     Active Substance: HYDROCHLOROTHIAZIDE\OLMESARTAN MEDOXOMIL
     Indication: HYPERTENSION
     Dosage: 20/12.5 MG, QD
     Route: 048
     Dates: start: 2008

REACTIONS (5)
  - Drug ineffective [Unknown]
  - Uterine leiomyoma [Unknown]
  - Off label use [Unknown]
  - Contraindicated product administered [Unknown]
  - Sinusitis [Unknown]

NARRATIVE: CASE EVENT DATE: 201007
